FAERS Safety Report 12619198 (Version 1)
Quarter: 2016Q3

REPORT INFORMATION
  Report Type: Spontaneous
  Country: US (occurrence: US)
  Receive Date: 20160803
  Receipt Date: 20160803
  Transmission Date: 20161109
  Serious: No
  Sender: FDA-Public Use
  Company Number: GXBR2015US002484

PATIENT
  Sex: Male

DRUGS (1)
  1. SWIM-EAR [Suspect]
     Active Substance: ISOPROPYL ALCOHOL
     Indication: EAR CONGESTION
     Dosage: 5 GTT, SEVERAL TIMES
     Route: 001
     Dates: start: 20151030, end: 20151030

REACTIONS (1)
  - Drug ineffective [Not Recovered/Not Resolved]

NARRATIVE: CASE EVENT DATE: 20151030
